FAERS Safety Report 8800947 (Version 2)
Quarter: 2012Q4

REPORT INFORMATION
  Report Type: 
  Country: NL (occurrence: NL)
  Receive Date: 20120921
  Receipt Date: 20121019
  Transmission Date: 20130627
  Serious: Yes (Hospitalization)
  Sender: FDA-Public Use
  Company Number: NL-NAPPMUNDI-GBR-2012-0011446

PATIENT
  Age: 93 Year
  Sex: Male

DRUGS (3)
  1. BUTRANS [Suspect]
     Indication: PAIN
     Dosage: 20 mcg, q1h
     Route: 062
     Dates: start: 20120828
  2. BUTRANS [Suspect]
     Dosage: 10 mcg, q1h
     Route: 062
     Dates: start: 20120821
  3. PARACETAMOL [Concomitant]

REACTIONS (4)
  - Atrial fibrillation [Recovered/Resolved]
  - Pyrexia [Recovered/Resolved]
  - Confusional state [Recovered/Resolved]
  - Peripheral arterial occlusive disease [Recovered/Resolved]
